FAERS Safety Report 7116176-1 (Version None)
Quarter: 2010Q4

REPORT INFORMATION
  Report Type: 
  Country: None (occurrence: None)
  Receive Date: 20101122
  Receipt Date: 20101112
  Transmission Date: 20110411
  Serious: Yes (Other)
  Sender: FDA-Public Use
  Company Number: PHHY2010BR19769

PATIENT
  Age: 79 Year
  Sex: Female

DRUGS (2)
  1. AMLODIPINE BESYLATE AND VALSARTAN [Suspect]
     Dosage: 160/5 MG
  2. STALEVO 100 [Suspect]
     Dosage: 200/100/25 MG

REACTIONS (5)
  - ABASIA [None]
  - BEDRIDDEN [None]
  - CEREBROVASCULAR ACCIDENT [None]
  - TREATMENT NONCOMPLIANCE [None]
  - VIITH NERVE PARALYSIS [None]
